FAERS Safety Report 7466212-8 (Version None)
Quarter: 2011Q2

REPORT INFORMATION
  Report Type: 
  Country: None (occurrence: None)
  Receive Date: 20110509
  Receipt Date: 20110427
  Transmission Date: 20111010
  Serious: Yes (Hospitalization, Other)
  Sender: FDA-Public Use
  Company Number: PHHY2010JP59878

PATIENT
  Sex: Male
  Weight: 70 kg

DRUGS (11)
  1. AFINITOR [Suspect]
     Indication: METASTATIC RENAL CELL CARCINOMA
     Dosage: 10 MG, UNK
     Route: 048
     Dates: start: 20100528, end: 20100830
  2. TAKEPRON [Concomitant]
     Indication: PROPHYLAXIS
     Dosage: 15 MG
     Route: 048
     Dates: start: 20100416
  3. ALDACTONE [Concomitant]
     Indication: METASTATIC RENAL CELL CARCINOMA
     Dosage: 25 MG
     Route: 048
     Dates: start: 20100416
  4. SUNITINIB MALATE [Concomitant]
     Indication: METASTATIC RENAL CELL CARCINOMA
     Dosage: 50 MG
     Route: 048
     Dates: start: 20100422, end: 20100510
  5. NAIXAN [Concomitant]
     Indication: METASTATIC RENAL CELL CARCINOMA
     Dosage: 300 MG
     Route: 048
     Dates: start: 20100416
  6. UREPEARL [Concomitant]
     Indication: PROPHYLAXIS
     Route: 061
  7. AFINITOR [Suspect]
     Dosage: 10 MG, DAILY
     Dates: start: 20101009, end: 20110224
  8. LASIX [Concomitant]
     Indication: METASTATIC RENAL CELL CARCINOMA
     Dosage: 40 MG
     Route: 048
     Dates: start: 20100416
  9. FERO-GRADUMET [Concomitant]
     Dosage: 105MG
     Route: 048
     Dates: start: 20100801
  10. LASIX [Concomitant]
     Dosage: 20 MG
     Route: 048
  11. MYSER [Concomitant]
     Indication: PROPHYLAXIS
     Route: 061

REACTIONS (9)
  - ANAEMIA [None]
  - GLYCOSYLATED HAEMOGLOBIN INCREASED [None]
  - DISSEMINATED INTRAVASCULAR COAGULATION [None]
  - BLOOD ALKALINE PHOSPHATASE INCREASED [None]
  - HYPERGLYCAEMIA [None]
  - HYPOALBUMINAEMIA [None]
  - GASTRIC HAEMORRHAGE [None]
  - GASTROENTERITIS RADIATION [None]
  - METASTASES TO BONE [None]
